FAERS Safety Report 17834502 (Version 3)
Quarter: 2020Q3

REPORT INFORMATION
  Report Type: Spontaneous
  Country: US (occurrence: US)
  Receive Date: 20200528
  Receipt Date: 20200723
  Transmission Date: 20201103
  Serious: No
  Sender: FDA-Public Use
  Company Number: US-PFIZER INC-2020208327

PATIENT
  Age: 79 Year
  Sex: Female
  Weight: 52.16 kg

DRUGS (2)
  1. ADVIL LIQUI?GELS [Suspect]
     Active Substance: IBUPROFEN
     Indication: PAIN
     Dosage: 2 CAPSULES, ONCE
     Route: 048
  2. ADVIL LIQUI?GELS [Suspect]
     Active Substance: IBUPROFEN
     Dosage: UNK

REACTIONS (2)
  - Oral discomfort [Recovered/Resolved]
  - Suspected product tampering [Recovered/Resolved]
